FAERS Safety Report 5830642-8 (Version None)
Quarter: 2008Q3

REPORT INFORMATION
  Report Type: 
  Country: None (occurrence: None)
  Receive Date: 20080801
  Receipt Date: 20070905
  Transmission Date: 20090109
  Serious: No
  Sender: FDA-Public Use
  Company Number: US-BRISTOL-MYERS SQUIBB COMPANY-13898218

PATIENT
  Sex: Male
  Weight: 120 kg

DRUGS (1)
  1. COUMADIN [Suspect]
     Indication: DEEP VEIN THROMBOSIS
     Dosage: 7.5MG-9MG DAILY.
     Route: 048
     Dates: start: 20010701

REACTIONS (1)
  - PHOTOSENSITIVITY REACTION [None]
